FAERS Safety Report 9785218 (Version 1)
Quarter: 2013Q4

REPORT INFORMATION
  Report Type: Spontaneous
  Country: US (occurrence: None)
  Receive Date: 20131224
  Receipt Date: 20131224
  Transmission Date: 20140711
  Serious: Yes (Other)
  Sender: FDA-Public Use
  Company Number: 2077474

PATIENT
  Age: 60 Year
  Sex: Female
  Weight: 28.8 kg

DRUGS (4)
  1. VANCOMYCIN HYDROCHLORIDE FOR INJECTION USP (VANCOMYCIN HYDROCHLORIDE) [Suspect]
     Indication: CLOSTRIDIUM DIFFICILE INFECTION
     Dosage: 3 DAY
     Route: 048
  2. VANCOMYCIN HYDROCHLORIDE FOR INJECTION USP (VANCOMYCIN HYDROCHLORIDE) [Suspect]
     Indication: CLOSTRIDIUM DIFFICILE INFECTION
     Dosage: 3 DAY
     Route: 048
  3. (LISINOPRIL) [Concomitant]
  4. (FLAGYL /00012501) [Concomitant]

REACTIONS (5)
  - Generalised erythema [None]
  - Pruritus [None]
  - Dysphonia [None]
  - Drug hypersensitivity [None]
  - Drug effect decreased [None]
